FAERS Safety Report 9352115 (Version 2)
Quarter: 2013Q2

REPORT INFORMATION
  Report Type: Report from Study
  Country: FR (occurrence: FR)
  Receive Date: 20130617
  Receipt Date: 20130620
  Transmission Date: 20140414
  Serious: Yes (Death, Hospitalization)
  Sender: FDA-Public Use
  Company Number: FR-TEVA-410879ISR

PATIENT
  Age: 55 Year
  Sex: Male
  Weight: 57 kg

DRUGS (5)
  1. EFFENTORA [Suspect]
     Route: 002
     Dates: start: 20130405
  2. MORPHINE [Concomitant]
     Dosage: 24 MILLIGRAM DAILY;
     Route: 065
     Dates: start: 20130421
  3. POLYIONIQUE [Concomitant]
     Route: 065
  4. CIMETIDINE [Concomitant]
     Dosage: 2 TABLET DAILY;
     Route: 065
     Dates: start: 20130422
  5. LOVENOX 40000 [Concomitant]
     Route: 065
     Dates: start: 20130422

REACTIONS (3)
  - Myocardial infarction [Fatal]
  - Intestinal anastomosis complication [Unknown]
  - Intestinal stenosis [Unknown]
